FAERS Safety Report 7125957-X (Version None)
Quarter: 2010Q4

REPORT INFORMATION
  Report Type: 
  Country: None (occurrence: None)
  Receive Date: 20101129
  Receipt Date: 20101118
  Transmission Date: 20110411
  Serious: Yes (Death)
  Sender: FDA-Public Use
  Company Number: FR-ROCHE-743108

PATIENT
  Sex: Female

DRUGS (6)
  1. ROCEPHIN [Suspect]
     Dosage: SINGLE INTAKE, POWDER FOR INJECTABLE SOLUTION
     Route: 042
     Dates: start: 20090905
  2. TERCIAN [Suspect]
     Dosage: LONG TERM
     Route: 048
     Dates: end: 20090905
  3. DIGITALINE NATIVELLE [Suspect]
     Dosage: LONG TERM
     Route: 048
     Dates: end: 20090905
  4. PROZAC [Suspect]
     Dosage: LONG TERM
     Route: 048
     Dates: end: 20090905
  5. LASILIX [Suspect]
     Dosage: LONG TERM
     Route: 048
     Dates: end: 20090905
  6. SINTROM [Suspect]
     Dosage: LONG TERM
     Route: 048
     Dates: end: 20090905

REACTIONS (1)
  - CARDIAC ARREST [None]
